FAERS Safety Report 5300035-0 (Version None)
Quarter: 2007Q2

REPORT INFORMATION
  Report Type: 
  Country: None (occurrence: None)
  Receive Date: 20070417
  Receipt Date: 20070405
  Transmission Date: 20071010
  Serious: Yes (Disabling, Other)
  Sender: FDA-Public Use
  Company Number: US-PFIZER INC-2006112753

PATIENT
  Sex: Female
  Weight: 108.9 kg

DRUGS (1)
  1. BEXTRA [Suspect]
     Indication: BURSITIS
     Dates: start: 20020612, end: 20050101

REACTIONS (1)
  - MYOCARDIAL INFARCTION [None]
